FAERS Safety Report 24558345 (Version 1)
Quarter: 2024Q4

REPORT INFORMATION
  Report Type: Spontaneous
  Country: GB (occurrence: GB)
  Receive Date: 20241029
  Receipt Date: 20241029
  Transmission Date: 20250115
  Serious: Yes (Other)
  Sender: ACCORD
  Company Number: None

PATIENT
  Age: 66 Year
  Sex: Male
  Weight: 94 kg

DRUGS (6)
  1. AMLODIPINE [Suspect]
     Active Substance: AMLODIPINE BESYLATE
     Indication: Hypertension
     Dates: start: 20240109, end: 20240905
  2. LERCANIDIPINE [Suspect]
     Active Substance: LERCANIDIPINE
     Indication: Hypertension
     Dates: start: 20240905, end: 20241002
  3. RAMIPRIL [Concomitant]
     Active Substance: RAMIPRIL
     Dosage: ONCE
     Dates: start: 20240719, end: 20240905
  4. ATORVASTATIN [Concomitant]
     Active Substance: ATORVASTATIN
     Dates: start: 20240726, end: 20241002
  5. DOXAZOSIN [Concomitant]
     Active Substance: DOXAZOSIN\DOXAZOSIN MESYLATE
     Dosage: ONCE A
     Dates: start: 20241002
  6. INDAPAMIDE [Concomitant]
     Active Substance: INDAPAMIDE
     Dosage: ONCE A
     Dates: start: 20240815

REACTIONS (2)
  - Vision blurred [Recovering/Resolving]
  - Retinopathy hypertensive [Unknown]

NARRATIVE: CASE EVENT DATE: 20240109
